FAERS Safety Report 9228893 (Version 1)
Quarter: 2013Q2

REPORT INFORMATION
  Report Type: Spontaneous
  Country: US (occurrence: US)
  Receive Date: 20130412
  Receipt Date: 20130412
  Transmission Date: 20140414
  Serious: No
  Sender: FDA-Public Use
  Company Number: US-PFIZER INC-2013114633

PATIENT
  Sex: Female

DRUGS (1)
  1. ADVIL [Suspect]
     Dosage: UNK
     Route: 048

REACTIONS (5)
  - Poor quality drug administered [Unknown]
  - Oral discomfort [Unknown]
  - Paraesthesia oral [Unknown]
  - Oral mucosal blistering [Unknown]
  - Capsule physical issue [Unknown]
